FAERS Safety Report 21420530 (Version 3)
Quarter: 2022Q4

REPORT INFORMATION
  Report Type: Spontaneous
  Country: US (occurrence: US)
  Receive Date: 20221007
  Receipt Date: 20221130
  Transmission Date: 20230113
  Serious: No
  Sender: FDA-Public Use
  Company Number: US-GSKCCFUS-Case-01514221_AE-86026

PATIENT
  Sex: Male

DRUGS (1)
  1. FLOVENT HFA [Suspect]
     Active Substance: FLUTICASONE PROPIONATE
     Indication: Product used for unknown indication
     Dosage: 2 PUFF(S), BID
     Route: 055

REACTIONS (2)
  - Extra dose administered [Unknown]
  - Product complaint [Unknown]
